FAERS Safety Report 19481303 (Version 1)
Quarter: 2021Q3

REPORT INFORMATION
  Report Type: Spontaneous
  Country: GB (occurrence: GB)
  Receive Date: 20210701
  Receipt Date: 20210701
  Transmission Date: 20211014
  Serious: Yes (Life-Threatening, Hospitalization)
  Sender: FDA-Public Use
  Company Number: GB-ADVANZ PHARMA-202106004596

PATIENT

DRUGS (2)
  1. PREDNISOLONE. [Suspect]
     Active Substance: PREDNISOLONE
     Dosage: UNK
  2. ASTRAZENECA COVID?19 VACCINE [Suspect]
     Active Substance: AZD-1222
     Dosage: DOSE 2
     Dates: start: 20210603

REACTIONS (3)
  - Headache [Recovering/Resolving]
  - Headache [Not Recovered/Not Resolved]
  - Giant cell arteritis [Recovering/Resolving]

NARRATIVE: CASE EVENT DATE: 20210606
